FAERS Safety Report 13294372 (Version 1)
Quarter: 2017Q1

REPORT INFORMATION
  Report Type: Spontaneous
  Country: US (occurrence: US)
  Receive Date: 20170303
  Receipt Date: 20170303
  Transmission Date: 20170428
  Serious: Yes (Other)
  Sender: FDA-Public Use
  Company Number: US-STANDARD HOMEOPATHIC COMPANY-1063811

PATIENT
  Age: 43 Year
  Sex: Male

DRUGS (2)
  1. HYLANDS LEG CRAMPS [Suspect]
     Active Substance: HOMEOPATHICS
     Indication: PAIN IN EXTREMITY
     Route: 048
     Dates: start: 20170117, end: 20170117
  2. HYLANDS LEG CRAMPS [Suspect]
     Active Substance: HOMEOPATHICS
     Indication: MUSCLE SPASMS
     Route: 048
     Dates: start: 20170117, end: 20170117

REACTIONS (6)
  - Head injury [None]
  - Pain [None]
  - Headache [None]
  - Seizure [None]
  - Fall [None]
  - Confusional state [None]

NARRATIVE: CASE EVENT DATE: 20170117
